FAERS Safety Report 5259737-7 (Version None)
Quarter: 2007Q1

REPORT INFORMATION
  Report Type: 
  Country: None (occurrence: None)
  Receive Date: 20070307
  Receipt Date: 20070220
  Transmission Date: 20070707
  Serious: Yes (Hospitalization)
  Sender: FDA-Public Use
  Company Number: A-US2006-13345

PATIENT
  Age: 72 Year
  Sex: Female
  Weight: 67 kg

DRUGS (8)
  1. TRACLEER [Suspect]
     Indication: PULMONARY HYPERTENSION
     Dosage: 125 MG, BID
     Dates: start: 20050701, end: 20060810
  2. AMBIEN [Concomitant]
  3. TYLENOL W/ CODEINE NO. 3 [Concomitant]
  4. LASIX [Concomitant]
  5. WARFARIN SODIUM [Concomitant]
  6. LEVOTHYROXINE SODIUM [Concomitant]
  7. INSULIN (INSULIN) [Concomitant]
  8. ZAROXOLYN [Concomitant]

REACTIONS (2)
  - ANAEMIA [None]
  - FLUID RETENTION [None]
